FAERS Safety Report 6267614-8 (Version None)
Quarter: 2009Q3

REPORT INFORMATION
  Report Type: 
  Country: None (occurrence: None)
  Receive Date: 20090710
  Receipt Date: 20090630
  Transmission Date: 20100115
  Serious: No
  Sender: FDA-Public Use
  Company Number: 1000006914

PATIENT
  Age: 74 Year
  Sex: Male

DRUGS (4)
  1. LEXAPRO [Suspect]
     Indication: DEPRESSION
     Dosage: 10 MG (10 MG, 1 IN 1 D), ORAL
     Route: 048
     Dates: start: 20090305, end: 20090515
  2. MIRTAZAPINE [Concomitant]
  3. DEANXIT (TABLETS) [Concomitant]
  4. MELITRACEN (TABLETS) [Concomitant]

REACTIONS (2)
  - OSTEOARTHRITIS [None]
  - RHEUMATOID FACTOR INCREASED [None]
